FAERS Safety Report 9753471 (Version 1)
Quarter: 2013Q4

REPORT INFORMATION
  Report Type: Spontaneous
  Country: US (occurrence: US)
  Receive Date: 20131213
  Receipt Date: 20131213
  Transmission Date: 20140711
  Serious: Yes (Other)
  Sender: FDA-Public Use
  Company Number: US-TEVA-403978USA

PATIENT
  Age: 22 Year
  Sex: Female

DRUGS (5)
  1. PARAGARD 380A [Suspect]
     Indication: CONTRACEPTION
     Route: 015
     Dates: start: 20130219
  2. CYMBALTA [Concomitant]
     Indication: DEPRESSION
  3. CYMBALTA [Concomitant]
     Indication: ANXIETY
  4. PROZAC [Concomitant]
     Indication: ANXIETY
  5. PROZAC [Concomitant]
     Indication: DEPRESSION

REACTIONS (4)
  - Device dislocation [Not Recovered/Not Resolved]
  - Dysmenorrhoea [Unknown]
  - Menorrhagia [Unknown]
  - Pain [Unknown]
